FAERS Safety Report 7165871-7 (Version None)
Quarter: 2010Q4

REPORT INFORMATION
  Report Type: 
  Country: None (occurrence: None)
  Receive Date: 20101215
  Receipt Date: 20101202
  Transmission Date: 20110411
  Serious: Yes (Other)
  Sender: FDA-Public Use
  Company Number: IT-MYLANLABS-2010S1022001

PATIENT
  Sex: Female

DRUGS (1)
  1. METFORMIN HCL [Suspect]
     Route: 048
     Dates: start: 20101129, end: 20101129

REACTIONS (2)
  - ACCIDENTAL DRUG INTAKE BY CHILD [None]
  - HYPOGLYCAEMIA [None]
